FAERS Safety Report 4469890-0 (Version None)
Quarter: 2004Q4

REPORT INFORMATION
  Report Type: 
  Country: None (occurrence: None)
  Receive Date: 20041008
  Receipt Date: 20040927
  Transmission Date: 20050328
  Serious: Yes (Hospitalization)
  Sender: FDA-Public Use
  Company Number: PHHO2004JP13672

PATIENT
  Age: 74 Year
  Sex: Female
  Weight: 43 kg

DRUGS (12)
  1. DIOVAN [Suspect]
     Indication: HYPERTENSION
     Dosage: 80 MG, QD
     Route: 048
     Dates: start: 20030628, end: 20030908
  2. PARLODEL [Concomitant]
     Indication: PARKINSON'S DISEASE
     Dates: start: 20030628, end: 20030908
  3. CEPHADOL [Concomitant]
     Indication: VERTIGO
     Dates: start: 20030628, end: 20030908
  4. MYONAL [Concomitant]
     Indication: BACK PAIN
     Dates: start: 20030628, end: 20030908
  5. KETAS [Concomitant]
     Indication: VERTIGO
     Dates: start: 20030628, end: 20030908
  6. MOBIC [Concomitant]
     Indication: BACK PAIN
     Dates: start: 20030628, end: 20030908
  7. AKINETON [Concomitant]
     Indication: PARKINSON'S DISEASE
     Dates: start: 20030628, end: 20030908
  8. SOLITA T [Concomitant]
     Dates: start: 20030628, end: 20030903
  9. VITAMEDIN [Concomitant]
     Dates: start: 20030628, end: 20030903
  10. CEFZON [Concomitant]
     Indication: INFECTION
     Dates: start: 20030818, end: 20030824
  11. AZULENE [Concomitant]
     Indication: LIP DRY
     Dates: start: 20030822, end: 20030908
  12. ARICEPT [Concomitant]
     Indication: DEMENTIA
     Dates: start: 20030628, end: 20030908

REACTIONS (2)
  - GASTRIC ULCER HAEMORRHAGE [None]
  - GENERAL PHYSICAL HEALTH DETERIORATION [None]
